FAERS Safety Report 4918450-3 (Version None)
Quarter: 2006Q1

REPORT INFORMATION
  Report Type: 
  Country: None (occurrence: None)
  Receive Date: 20060217
  Receipt Date: 20060217
  Transmission Date: 20060701
  Serious: No
  Sender: FDA-Public Use
  Company Number: None

PATIENT
  Age: 54 Year
  Sex: Female
  Weight: 90.7194 kg

DRUGS (2)
  1. FEXOFENADINE 180MG [Suspect]
     Indication: CONJUNCTIVITIS ALLERGIC
     Dosage: ONE TAB QD PO
     Route: 048
     Dates: start: 20060101, end: 20060217
  2. FEXOFENADINE 180MG [Suspect]
     Indication: RHINITIS ALLERGIC
     Dosage: ONE TAB QD PO
     Route: 048
     Dates: start: 20060101, end: 20060217

REACTIONS (2)
  - DRUG INEFFECTIVE [None]
  - THERAPEUTIC RESPONSE UNEXPECTED WITH DRUG SUBSTITUTION [None]
